FAERS Safety Report 5569765-X (Version None)
Quarter: 2007Q4

REPORT INFORMATION
  Report Type: 
  Country: None (occurrence: None)
  Receive Date: 20071220
  Receipt Date: 20061218
  Transmission Date: 20080405
  Serious: No
  Sender: FDA-Public Use
  Company Number: US-ABBOTT-06P-163-0354070-00

PATIENT
  Sex: Female
  Weight: 47.67 kg

DRUGS (1)
  1. OMNICEF [Suspect]
     Indication: SINUSITIS
     Route: 048
     Dates: start: 20061204, end: 20061209

REACTIONS (1)
  - CLOSTRIDIAL INFECTION [None]
